FAERS Safety Report 8824602 (Version 1)
Quarter: 2012Q4

REPORT INFORMATION
  Report Type: 
  Country: FR (occurrence: FR)
  Receive Date: 20121004
  Receipt Date: 20121004
  Transmission Date: 20130627
  Serious: Yes (Hospitalization)
  Sender: FDA-Public Use
  Company Number: FR-SANOFI-AVENTIS-2012SA070807

PATIENT
  Age: 83 Year
  Sex: Female

DRUGS (13)
  1. PLAVIX [Suspect]
     Indication: DRUG USE FOR UNKNOWN INDICATION
     Route: 048
     Dates: start: 20120619, end: 20120723
  2. PREVISCAN [Concomitant]
  3. ZESTRIL [Concomitant]
  4. VERAPAMIL [Concomitant]
  5. ELISOR [Concomitant]
     Dates: start: 20120624
  6. ALENDRONIC ACID [Concomitant]
  7. LEVOTHYROX [Concomitant]
  8. IXPRIM [Concomitant]
  9. DAFALGAN [Concomitant]
  10. KARDEGIC [Concomitant]
     Dates: start: 20120619
  11. INEXIUM [Concomitant]
     Dates: start: 20120619
  12. INSULATARD [Concomitant]
     Indication: DIABETES
     Dates: start: 20120705
  13. ROCEPHINE [Concomitant]
     Indication: ACUTE PYELONEPHRITIS
     Dates: start: 20120625, end: 20120717

REACTIONS (1)
  - Leukopenia [Recovered/Resolved]
